FAERS Safety Report 20857732 (Version 4)
Quarter: 2022Q4

REPORT INFORMATION
  Report Type: Report from Study
  Country: US (occurrence: US)
  Receive Date: 20220521
  Receipt Date: 20221019
  Transmission Date: 20230112
  Serious: No
  Sender: FDA-Public Use
  Company Number: US-NOVARTISTESTPH-NVSC2022US117115

PATIENT
  Sex: Female

DRUGS (1)
  1. COSENTYX [Suspect]
     Active Substance: SECUKINUMAB
     Indication: Psoriatic arthropathy
     Dosage: 300 MG, QW (ONCE A WEEK FOR 5 WEEKS THEN ONCE EVERY 4 WEEKS)
     Route: 058

REACTIONS (2)
  - Drug ineffective [Unknown]
  - Product distribution issue [Unknown]
